FAERS Safety Report 6772430-4 (Version None)
Quarter: 2010Q2

REPORT INFORMATION
  Report Type: 
  Country: None (occurrence: None)
  Receive Date: 20100616
  Receipt Date: 20100330
  Transmission Date: 20101027
  Serious: No
  Sender: FDA-Public Use
  Company Number: US-ASTRAZENECA-2010SE14039

PATIENT
  Age: 88 Year
  Sex: Female

DRUGS (5)
  1. PULMICORT RESPULES [Suspect]
     Route: 055
     Dates: start: 20100327, end: 20100329
  2. NEXIUM [Concomitant]
  3. ZANTAC [Concomitant]
  4. BENICAR [Concomitant]
  5. XALATAN [Concomitant]

REACTIONS (2)
  - ANXIETY [None]
  - EAR DISCOMFORT [None]
